FAERS Safety Report 5204031-3 (Version None)
Quarter: 2007Q1

REPORT INFORMATION
  Report Type: 
  Country: None (occurrence: None)
  Receive Date: 20070110
  Receipt Date: 20051121
  Transmission Date: 20070707
  Serious: No
  Sender: FDA-Public Use
  Company Number: US-BRISTOL-MYERS SQUIBB COMPANY-13151808

PATIENT
  Age: 19 Year
  Sex: Female

DRUGS (2)
  1. ABILIFY [Suspect]
     Indication: PSYCHOTIC DISORDER
     Route: 048
     Dates: start: 20050101, end: 20051116
  2. ABILIFY [Suspect]
     Route: 048
     Dates: start: 20051116

REACTIONS (1)
  - TARDIVE DYSKINESIA [None]
